FAERS Safety Report 13828633 (Version 1)
Quarter: 2017Q3

REPORT INFORMATION
  Report Type: Spontaneous
  Country: US (occurrence: US)
  Receive Date: 20170803
  Receipt Date: 20170803
  Transmission Date: 20171127
  Serious: No
  Sender: FDA-Public Use
  Company Number: US-AMGEN-USASP2017113346

PATIENT
  Sex: Female

DRUGS (3)
  1. PANTOPRAZOLE SODIUM. [Suspect]
     Active Substance: PANTOPRAZOLE SODIUM
     Indication: PRODUCT USED FOR UNKNOWN INDICATION
     Dosage: 40 MG, UNK
     Route: 065
  2. METHOTREXATE. [Suspect]
     Active Substance: METHOTREXATE
     Indication: PRODUCT USED FOR UNKNOWN INDICATION
     Dosage: UNK
     Route: 065
  3. ENBREL [Suspect]
     Active Substance: ETANERCEPT
     Indication: PRODUCT USED FOR UNKNOWN INDICATION
     Dosage: UNK
     Route: 065

REACTIONS (14)
  - Joint swelling [Recovering/Resolving]
  - Pain [Recovering/Resolving]
  - Arthritis [Unknown]
  - Fluid retention [Unknown]
  - Condition aggravated [Recovering/Resolving]
  - Joint warmth [Unknown]
  - Synovitis [Unknown]
  - Joint crepitation [Unknown]
  - Musculoskeletal stiffness [Unknown]
  - Tendonitis [Unknown]
  - Joint effusion [Unknown]
  - Musculoskeletal discomfort [Recovering/Resolving]
  - Nausea [Unknown]
  - Tenderness [Unknown]
